FAERS Safety Report 13177433 (Version 1)
Quarter: 2017Q1

REPORT INFORMATION
  Report Type: Report from Study
  Country: US (occurrence: US)
  Receive Date: 20170201
  Receipt Date: 20170201
  Transmission Date: 20170428
  Serious: No
  Sender: FDA-Public Use
  Company Number: US-EXELIXIS-CABO-16006228

PATIENT
  Sex: Female

DRUGS (22)
  1. TOPROL XL [Concomitant]
     Active Substance: METOPROLOL SUCCINATE
  2. LOSARTAN. [Concomitant]
     Active Substance: LOSARTAN
  3. LEVEMIR [Concomitant]
     Active Substance: INSULIN DETEMIR
  4. LYRICA [Concomitant]
     Active Substance: PREGABALIN
  5. VITAMIN B12 [Concomitant]
     Active Substance: CYANOCOBALAMIN
  6. LOMOTIL [Concomitant]
     Active Substance: ATROPINE SULFATE\DIPHENOXYLATE HYDROCHLORIDE
  7. CALCIUM +D [Concomitant]
     Active Substance: CALCIUM\VITAMIN D
  8. COMETRIQ [Suspect]
     Active Substance: CABOZANTINIB S-MALATE
     Indication: RENAL CANCER
     Dosage: 60 MG, QD
     Route: 048
     Dates: start: 20160308
  9. NALOXEGOL [Concomitant]
     Active Substance: NALOXEGOL
  10. XANAX [Concomitant]
     Active Substance: ALPRAZOLAM
  11. COMPAZINE [Concomitant]
     Active Substance: PROCHLORPERAZINE MALEATE
  12. KEFLEX [Concomitant]
     Active Substance: CEPHALEXIN
  13. MIRALAX [Concomitant]
     Active Substance: POLYETHYLENE GLYCOL 3350
  14. FLEXERIL [Concomitant]
     Active Substance: CYCLOBENZAPRINE HYDROCHLORIDE
  15. FENTANYL. [Concomitant]
     Active Substance: FENTANYL
  16. ZOLOFT [Concomitant]
     Active Substance: SERTRALINE HYDROCHLORIDE
  17. HYDROCHLOROTHIAZIDE. [Concomitant]
     Active Substance: HYDROCHLOROTHIAZIDE
  18. LIPITOR [Concomitant]
     Active Substance: ATORVASTATIN CALCIUM
  19. DETROL [Concomitant]
     Active Substance: TOLTERODINE TARTRATE
  20. ZOFRAN [Concomitant]
     Active Substance: ONDANSETRON HYDROCHLORIDE
  21. PROBIOTIC [Concomitant]
     Active Substance: PROBIOTICS NOS
  22. MULTIVITAMIN [Concomitant]
     Active Substance: VITAMINS

REACTIONS (5)
  - Skin ulcer [Recovering/Resolving]
  - Rash [Not Recovered/Not Resolved]
  - Nausea [Recovering/Resolving]
  - Skin exfoliation [Not Recovered/Not Resolved]
  - Off label use [Unknown]
